FAERS Safety Report 15457073 (Version 1)
Quarter: 2018Q4

REPORT INFORMATION
  Report Type: Spontaneous
  Country: US (occurrence: US)
  Receive Date: 20181002
  Receipt Date: 20181002
  Transmission Date: 20190204
  Serious: Yes (Other)
  Sender: FDA-Public Use
  Company Number: US-SA-2017SA255561

PATIENT
  Age: 56 Year
  Sex: Female
  Weight: 77.18 kg

DRUGS (10)
  1. TAXOTERE [Suspect]
     Active Substance: DOCETAXEL
     Indication: BREAST CANCER FEMALE
     Dosage: 194 MG, Q3W
     Route: 042
     Dates: start: 20100706, end: 20100706
  2. LORAZEPAM. [Concomitant]
     Active Substance: LORAZEPAM
     Dosage: UNK UNK, UNK
     Route: 065
  3. PHENERGAN [PROMETHAZINE] [Concomitant]
     Dosage: UNK UNK, UNK
     Route: 065
  4. CITALOPRAM [Concomitant]
     Active Substance: CITALOPRAM HYDROBROMIDE
     Dosage: UNK UNK, UNK
     Route: 065
  5. COMPAZINE [PROCHLORPERAZINE EDISYLATE] [Concomitant]
     Dosage: UNK UNK, UNK
     Route: 065
  6. ZOFRAN [ONDANSETRON] [Concomitant]
     Dosage: UNK UNK, UNK
     Route: 065
  7. DOXORUBICIN [Concomitant]
     Active Substance: DOXORUBICIN
     Route: 065
  8. LEXAPRO [Concomitant]
     Active Substance: ESCITALOPRAM OXALATE
     Dosage: UNK UNK, UNK
     Route: 065
  9. TAXOTERE [Suspect]
     Active Substance: DOCETAXEL
     Dosage: 194 MG, Q3W
     Route: 042
     Dates: start: 20100907, end: 20100907
  10. NEOSAR [Concomitant]
     Active Substance: CYCLOPHOSPHAMIDE
     Route: 065

REACTIONS (2)
  - Psychological trauma [Unknown]
  - Alopecia [Recovering/Resolving]

NARRATIVE: CASE EVENT DATE: 201006
